FAERS Safety Report 4638659-6 (Version None)
Quarter: 2005Q2

REPORT INFORMATION
  Report Type: 
  Country: None (occurrence: None)
  Receive Date: 20050415
  Receipt Date: 20050415
  Transmission Date: 20051028
  Serious: Yes (Other)
  Sender: FDA-Public Use
  Company Number: None

PATIENT
  Age: 2 Year
  Sex: Male
  Weight: 16.3295 kg

DRUGS (1)
  1. KENALOG [Suspect]
     Indication: TRACHEOBRONCHITIS
     Dosage: 30MG R BUTTOCK IM
     Route: 030

REACTIONS (3)
  - CONDITION AGGRAVATED [None]
  - INJECTION SITE REACTION [None]
  - TRACHEOBRONCHITIS [None]
